FAERS Safety Report 6712165-7 (Version None)
Quarter: 2010Q2

REPORT INFORMATION
  Report Type: 
  Country: None (occurrence: None)
  Receive Date: 20100505
  Receipt Date: 20100423
  Transmission Date: 20101027
  Serious: Yes (Death)
  Sender: FDA-Public Use
  Company Number: US-ROCHE-700571

PATIENT

DRUGS (2)
  1. ACCUTANE [Suspect]
     Indication: DRUG USE FOR UNKNOWN INDICATION
     Route: 065
  2. CHANTIX [Interacting]
     Indication: DRUG USE FOR UNKNOWN INDICATION
     Dosage: FORM: FILM COATED TABLET
     Route: 065

REACTIONS (3)
  - COMPLETED SUICIDE [None]
  - DEPRESSION [None]
  - DRUG INTERACTION [None]
